FAERS Safety Report 6295593-6 (Version None)
Quarter: 2009Q3

REPORT INFORMATION
  Report Type: 
  Country: None (occurrence: None)
  Receive Date: 20090731
  Receipt Date: 20090728
  Transmission Date: 20100115
  Serious: Yes (Hospitalization)
  Sender: FDA-Public Use
  Company Number: THQ2009A01114

PATIENT
  Age: 64 Year
  Sex: Male

DRUGS (12)
  1. ACTOS [Suspect]
     Indication: DRUG USE FOR UNKNOWN INDICATION
     Dosage: 30 MG,
     Dates: end: 20080312
  2. MEDROL [Concomitant]
  3. IMUREL (AZAHIOPRINE) [Concomitant]
  4. SANDIMMUNE [Concomitant]
  5. LESCOL [Concomitant]
  6. COZAAR [Concomitant]
  7. SALBUTAMOL [Concomitant]
  8. BUDESONIDE [Concomitant]
  9. DISPERIN (ACETYLSALICYLIC ACID) [Concomitant]
  10. AMARYL [Concomitant]
  11. METFORMIN HCL [Concomitant]
  12. CORTISONE [Concomitant]

REACTIONS (3)
  - HYPONATRAEMIA [None]
  - MENINGITIS VIRAL [None]
  - WEIGHT INCREASED [None]
